FAERS Safety Report 4780432-2 (Version None)
Quarter: 2005Q3

REPORT INFORMATION
  Report Type: 
  Country: None (occurrence: None)
  Receive Date: 20050926
  Receipt Date: 20050914
  Transmission Date: 20060218
  Serious: Yes (Death)
  Sender: FDA-Public Use
  Company Number: 2005129539

PATIENT
  Age: 18 Month
  Sex: 0
  Weight: 11 kg

DRUGS (1)
  1. FOSPHENYTOIN SODIUM [Suspect]
     Indication: ILL-DEFINED DISORDER
     Dosage: 2000 MG (1  TOTAL)

REACTIONS (6)
  - BRADYCARDIA [None]
  - CARDIAC ARREST [None]
  - DRUG TOXICITY [None]
  - INCORRECT DOSE ADMINISTERED [None]
  - INCORRECT ROUTE OF DRUG ADMINISTRATION [None]
  - WRONG DRUG ADMINISTERED [None]
